FAERS Safety Report 8298967-7 (Version None)
Quarter: 2012Q2

REPORT INFORMATION
  Report Type: 
  Country: None (occurrence: None)
  Receive Date: 20120419
  Receipt Date: 20120413
  Transmission Date: 20120825
  Serious: Yes (Other)
  Sender: FDA-Public Use
  Company Number: IT-MERCK-1204USA02299

PATIENT
  Age: 16 Year
  Sex: Male

DRUGS (1)
  1. DECADRON [Suspect]
     Indication: HASHIMOTO'S ENCEPHALOPATHY
     Route: 048

REACTIONS (1)
  - PSYCHOTIC DISORDER [None]
